FAERS Safety Report 23390394 (Version 1)
Quarter: 2024Q1

REPORT INFORMATION
  Report Type: Spontaneous
  Country: US (occurrence: US)
  Receive Date: 20240111
  Receipt Date: 20240111
  Transmission Date: 20240410
  Serious: Yes (Other)
  Sender: FDA-Public Use
  Company Number: US-SUN PHARMACEUTICAL INDUSTRIES LTD-2023R1-426636

PATIENT
  Age: 72 Year
  Sex: Female

DRUGS (1)
  1. FLECAINIDE ACETATE [Suspect]
     Active Substance: FLECAINIDE ACETATE
     Indication: Ventricular extrasystoles
     Dosage: 100 MILLIGRAM, BID
     Route: 065

REACTIONS (4)
  - Hypotension [Unknown]
  - Acute kidney injury [Unknown]
  - Device electrical impedance issue [Unknown]
  - Toxicity to various agents [Unknown]
